FAERS Safety Report 12130421 (Version 10)
Quarter: 2017Q1

REPORT INFORMATION
  Report Type: Spontaneous
  Country: US (occurrence: US)
  Receive Date: 20160301
  Receipt Date: 20170202
  Transmission Date: 20170428
  Serious: Yes (Congenital Anomaly, Other)
  Sender: FDA-Public Use
  Company Number: PHEH2016US004916

PATIENT
  Sex: Male

DRUGS (4)
  1. ZOFRAN [Suspect]
     Active Substance: ONDANSETRON HYDROCHLORIDE
     Indication: FOETAL EXPOSURE DURING PREGNANCY
     Dosage: MOTHER DOSE: 8 MG, ONCE DAILY (QD)
     Route: 064
  2. ZOFRAN ODT [Suspect]
     Active Substance: ONDANSETRON HYDROCHLORIDE
     Indication: FOETAL EXPOSURE DURING PREGNANCY
     Dosage: MOTHER DOSE: 8 MG (Q8H)
     Route: 064
  3. COUMADIN [Suspect]
     Active Substance: WARFARIN SODIUM
     Indication: INTRACARDIAC THROMBUS
     Dosage: 1 TO 5 MG, QD
     Route: 065
     Dates: start: 200707
  4. BABY ASPIRIN [Suspect]
     Active Substance: ASPIRIN
     Indication: INTRACARDIAC THROMBUS
     Dosage: 81 MG, QD
     Route: 065
     Dates: start: 2013

REACTIONS (41)
  - Heart disease congenital [Unknown]
  - Congenital anomaly [Unknown]
  - Pain [Unknown]
  - Gastrooesophageal reflux disease [Unknown]
  - Atrial septal defect [Unknown]
  - Williams syndrome [Unknown]
  - Patent ductus arteriosus [Unknown]
  - Tricuspid valve incompetence [Recovering/Resolving]
  - Emotional distress [Unknown]
  - Cough [Unknown]
  - Eye contusion [Unknown]
  - Hypoplastic left heart syndrome [Unknown]
  - Intracardiac thrombus [Unknown]
  - Congenital tricuspid valve atresia [Unknown]
  - Sinobronchitis [Unknown]
  - Convulsion neonatal [Unknown]
  - Rhinorrhoea [Unknown]
  - Attention deficit/hyperactivity disorder [Unknown]
  - Otitis media [Unknown]
  - Anxiety [Unknown]
  - Right atrial dilatation [Unknown]
  - Congenital mitral valve stenosis [Unknown]
  - Tricuspid valve prolapse [Unknown]
  - Neonatal respiratory distress syndrome [Unknown]
  - Nasal congestion [Unknown]
  - Sinusitis [Unknown]
  - Cyanosis neonatal [Unknown]
  - Foetal exposure during pregnancy [Unknown]
  - Oropharyngeal pain [Unknown]
  - Cardiomegaly [Unknown]
  - Heart valve incompetence [Unknown]
  - Left-to-right cardiac shunt [Unknown]
  - Congenital aortic atresia [Unknown]
  - Right ventricular hypertrophy [Unknown]
  - Injury [Unknown]
  - Cardiac murmur [Unknown]
  - Dermatitis diaper [Unknown]
  - Dyspnoea [Unknown]
  - Sensitivity to weather change [Unknown]
  - Anhedonia [Unknown]
  - Rhinitis [Unknown]
